FAERS Safety Report 20016602 (Version 1)
Quarter: 2021Q4

REPORT INFORMATION
  Report Type: Spontaneous
  Country: US (occurrence: None)
  Receive Date: 20211104
  Receipt Date: 20211104
  Transmission Date: 20220303
  Serious: Yes (Other)
  Sender: FDA-Public Use
  Company Number: None

PATIENT
  Age: 37 Year
  Sex: Male
  Weight: 92.25 kg

DRUGS (3)
  1. REGEN-COV [Suspect]
     Active Substance: CASIRIVIMAB\IMDEVIMAB
     Indication: COVID-19
     Dates: start: 20211103, end: 20211103
  2. ALPRAZOLAM [Concomitant]
     Active Substance: ALPRAZOLAM
  3. VENLAFAXINE [Concomitant]
     Active Substance: VENLAFAXINE HYDROCHLORIDE

REACTIONS (7)
  - Feeling abnormal [None]
  - Hyperhidrosis [None]
  - Flushing [None]
  - Feeling abnormal [None]
  - Heart rate decreased [None]
  - Heart rate decreased [None]
  - Respiratory rate increased [None]

NARRATIVE: CASE EVENT DATE: 20211103
